FAERS Safety Report 6443344-4 (Version None)
Quarter: 2009Q4

REPORT INFORMATION
  Report Type: 
  Country: None (occurrence: None)
  Receive Date: 20091117
  Receipt Date: 20091110
  Transmission Date: 20100525
  Serious: Yes (Life-Threatening, Hospitalization)
  Sender: FDA-Public Use
  Company Number: FR-MERCK-0911FRA00039

PATIENT
  Age: 54 Year
  Sex: Male

DRUGS (3)
  1. HYZAAR [Suspect]
     Route: 048
     Dates: start: 20090531, end: 20090531
  2. ACEBUTOLOL HYDROCHLORIDE [Suspect]
     Route: 048
     Dates: start: 20090531, end: 20090531
  3. ALCOHOL [Concomitant]
     Route: 048
     Dates: start: 20090531

REACTIONS (2)
  - CIRCULATORY COLLAPSE [None]
  - OVERDOSE [None]
